FAERS Safety Report 6993126-X (Version None)
Quarter: 2010Q3

REPORT INFORMATION
  Report Type: 
  Country: None (occurrence: None)
  Receive Date: 20100917
  Receipt Date: 20100215
  Transmission Date: 20110219
  Serious: No
  Sender: FDA-Public Use
  Company Number: US-ASTRAZENECA-2010SE06647

PATIENT
  Age: 13347 Day
  Sex: Male
  Weight: 99.8 kg

DRUGS (6)
  1. SEROQUEL XR [Suspect]
     Route: 048
     Dates: start: 20090101, end: 20100107
  2. SEROQUEL XR [Suspect]
     Route: 048
     Dates: start: 20100109
  3. DEPAKOTE [Concomitant]
  4. BUSPAR [Concomitant]
  5. PROZAC [Concomitant]
  6. XANAX [Concomitant]

REACTIONS (1)
  - HALLUCINATION [None]
